FAERS Safety Report 8984073 (Version 1)
Quarter: 2012Q4

REPORT INFORMATION
  Report Type: Spontaneous
  Country: US (occurrence: None)
  Receive Date: 20121213
  Receipt Date: 20121213
  Transmission Date: 20130627
  Serious: Yes (Other)
  Sender: FDA-Public Use
  Company Number: PR-AE12-000514

PATIENT
  Age: 84 Year
  Sex: Female

DRUGS (6)
  1. ECOTRIN [Suspect]
     Indication: PAIN MANAGEMENT
     Route: 048
     Dates: start: 2004, end: 20121120
  2. COUMADIN [Suspect]
     Indication: ANTICOAGULANT THERAPY
     Route: 048
     Dates: start: 2004
  3. TOPROL (METOPROLOL) [Concomitant]
  4. SIMVASTATIN [Concomitant]
  5. ARIMIDEX (ANASTROZOLE) [Concomitant]
  6. SYNTHROID (LEVOTHYROXINE SODIUM TABLETS) [Concomitant]

REACTIONS (1)
  - Epistaxis [None]
